FAERS Safety Report 14413297 (Version 1)
Quarter: 2018Q1

REPORT INFORMATION
  Report Type: Spontaneous
  Country: FR (occurrence: FR)
  Receive Date: 20180119
  Receipt Date: 20180119
  Transmission Date: 20180509
  Serious: Yes (Other)
  Sender: FDA-Public Use
  Company Number: FR-PURDUE-GBR-2018-0052536

PATIENT
  Age: 35 Year
  Sex: Male

DRUGS (9)
  1. FENTANYL. [Suspect]
     Active Substance: FENTANYL
     Indication: PELVIC PAIN
     Dosage: 2400 MCG, DAILY [400MCG 6 TIMES A DAY]
     Route: 065
  2. VENLAFAXINE [Concomitant]
     Active Substance: VENLAFAXINE HYDROCHLORIDE
     Dosage: 75 MG, BID
  3. OXYCODONE HYDROCHLORIDE. [Suspect]
     Active Substance: OXYCODONE HYDROCHLORIDE
     Indication: PRODUCT USED FOR UNKNOWN INDICATION
     Dosage: 80 MG, BID
     Route: 065
  4. BUPRENORPHINE AND NALOXONE [Suspect]
     Active Substance: BUPRENORPHINE\NALOXONE
     Indication: PRODUCT USED FOR UNKNOWN INDICATION
     Dosage: 22 MG, DAILY
     Route: 065
  5. GONADOTROPHINE [Concomitant]
     Route: 030
  6. ZOLPIDEM [Concomitant]
     Active Substance: ZOLPIDEM\ZOLPIDEM TARTRATE
     Dosage: 0.5 DF, PM (IN THE EVENING)
  7. PREGABALIN. [Concomitant]
     Active Substance: PREGABALIN
     Dosage: 75 MG, BID
  8. HYDROCORTISONE. [Concomitant]
     Active Substance: HYDROCORTISONE
     Dosage: 10 MG, DAILY
  9. PENTOSAN [Concomitant]
     Active Substance: PENTOSAN POLYSULFATE SODIUM
     Dosage: 100 MG, TID

REACTIONS (12)
  - Thermophobia [Unknown]
  - Drug dependence [Unknown]
  - Headache [Unknown]
  - Hyperhidrosis [Unknown]
  - Hypopituitarism [Unknown]
  - Asthenia [Unknown]
  - Fatigue [Unknown]
  - Adrenocorticotropic hormone deficiency [Unknown]
  - Feeling cold [Unknown]
  - Libido decreased [Unknown]
  - Disturbance in attention [Unknown]
  - Memory impairment [Unknown]
